FAERS Safety Report 5422276-4 (Version None)
Quarter: 2007Q3

REPORT INFORMATION
  Report Type: 
  Country: None (occurrence: None)
  Receive Date: 20070820
  Receipt Date: 20070820
  Transmission Date: 20080115
  Serious: Yes (Disabling, Other)
  Sender: FDA-Public Use
  Company Number: None

PATIENT
  Age: 60 Year
  Sex: Female
  Weight: 56.246 kg

DRUGS (1)
  1. ALLEGRA-D 12 HOUR [Suspect]
     Indication: HYPERSENSITIVITY
     Dosage: 1 PILL  2 X DAILY
     Dates: start: 20020101, end: 20070101

REACTIONS (4)
  - ABDOMINAL PAIN LOWER [None]
  - ABDOMINAL PAIN UPPER [None]
  - MASS [None]
  - PHARMACEUTICAL PRODUCT COMPLAINT [None]
